FAERS Safety Report 8507926-8 (Version None)
Quarter: 2012Q3

REPORT INFORMATION
  Report Type: 
  Country: None (occurrence: None)
  Receive Date: 20120709
  Receipt Date: 20120709
  Transmission Date: 20120928
  Serious: Yes (Other)
  Sender: FDA-Public Use
  Company Number: None

PATIENT
  Sex: Female
  Weight: 78.0187 kg

DRUGS (2)
  1. CIPROFLOXACIN [Suspect]
     Indication: NEPHROLITHIASIS
     Dosage: 500MG BID PO
     Route: 048
     Dates: start: 20120701, end: 20120704
  2. CIPROFLOXACIN [Suspect]
     Indication: KIDNEY INFECTION
     Dosage: 500MG BID PO
     Route: 048
     Dates: start: 20120701, end: 20120704

REACTIONS (1)
  - HALLUCINATIONS, MIXED [None]
